FAERS Safety Report 8300165 (Version 3)
Quarter: 2013Q1

REPORT INFORMATION
  Report Type: Spontaneous
  Country: US (occurrence: US)
  Receive Date: 20111219
  Receipt Date: 20130318
  Transmission Date: 20140127
  Serious: Yes (Hospitalization, Other)
  Sender: FDA-Public Use
  Company Number: US-ASTRAZENECA-2011SE33699

PATIENT
  Age: 88 Year
  Sex: Female

DRUGS (2)
  1. CRESTOR [Suspect]
     Route: 048
  2. VERAPAMIL [Concomitant]

REACTIONS (11)
  - Myocardial infarction [Unknown]
  - Pain in extremity [Unknown]
  - Eye swelling [Unknown]
  - Cardiac disorder [Unknown]
  - Nervousness [Unknown]
  - Malaise [Unknown]
  - Multiple allergies [Unknown]
  - Malaise [Unknown]
  - Confusional state [Unknown]
  - Pain [Unknown]
  - Hypertension [Unknown]
